FAERS Safety Report 10197752 (Version 1)
Quarter: 2014Q2

REPORT INFORMATION
  Report Type: Spontaneous
  Country: US (occurrence: US)
  Receive Date: 20140527
  Receipt Date: 20140527
  Transmission Date: 20141212
  Serious: Yes (Hospitalization)
  Sender: FDA-Public Use
  Company Number: US-BRISTOL-MYERS SQUIBB COMPANY-20778221

PATIENT
  Age: 40 Year
  Sex: Female
  Weight: 166.89 kg

DRUGS (2)
  1. SPRYCEL [Suspect]
     Indication: CHRONIC MYELOID LEUKAEMIA
     Dates: start: 201402
  2. AUGMENTIN [Concomitant]

REACTIONS (2)
  - Strangulated hernia [Unknown]
  - Weight increased [Unknown]
